FAERS Safety Report 22630214 (Version 1)
Quarter: 2023Q2

REPORT INFORMATION
  Report Type: Spontaneous
  Country: JP (occurrence: JP)
  Receive Date: 20230622
  Receipt Date: 20230622
  Transmission Date: 20230722
  Serious: Yes (Hospitalization)
  Sender: FDA-Public Use
  Company Number: JP-ferring-EVA202300713FERRINGPH

PATIENT

DRUGS (2)
  1. DESMOPRESSIN ACETATE [Suspect]
     Active Substance: DESMOPRESSIN ACETATE
     Indication: Diabetes insipidus
     Dosage: 60 UG, 2 TIMES DAILY (TWO TABLETS, ONE TABLET AT 7:00 AND ONE TABLET AT NIGHT)
     Route: 060
     Dates: start: 20230607
  2. DESMOPRESSIN ACETATE [Suspect]
     Active Substance: DESMOPRESSIN ACETATE
     Dosage: 180 UG, DAILY (THREE TABLETS)
     Route: 060

REACTIONS (5)
  - Hospitalisation [Unknown]
  - Urine output fluctuation [Unknown]
  - Hyponatraemia [Unknown]
  - Labelled drug-disease interaction medication error [Unknown]
  - Contraindicated product administered [Unknown]

NARRATIVE: CASE EVENT DATE: 20230601
